FAERS Safety Report 8134814-1 (Version None)
Quarter: 2012Q1

REPORT INFORMATION
  Report Type: 
  Country: None (occurrence: None)
  Receive Date: 20120210
  Receipt Date: 20120127
  Transmission Date: 20120608
  Serious: Yes (Death)
  Sender: FDA-Public Use
  Company Number: 2012P1003354

PATIENT
  Age: 85 Year
  Sex: Female
  Weight: 74.8435 kg

DRUGS (2)
  1. MILD DIURETIC [Concomitant]
  2. FLUOCINOLONE ACETONIDE [Suspect]
     Indication: RASH
     Dosage: BID;TOP
     Route: 061
     Dates: start: 20110201

REACTIONS (7)
  - URINE OUTPUT DECREASED [None]
  - DIALYSIS [None]
  - THROMBOSIS [None]
  - ACTIVITIES OF DAILY LIVING IMPAIRED [None]
  - RASH [None]
  - MULTI-ORGAN FAILURE [None]
  - PNEUMOTHORAX [None]
